FAERS Safety Report 6176603-3 (Version None)
Quarter: 2009Q2

REPORT INFORMATION
  Report Type: 
  Country: None (occurrence: None)
  Receive Date: 20090501
  Receipt Date: 20081014
  Transmission Date: 20091009
  Serious: Yes (Death, Hospitalization)
  Sender: FDA-Public Use
  Company Number: US-ALEXION-A200800280

PATIENT

DRUGS (1)
  1. SOLIRIS [Suspect]
     Dates: end: 20080612

REACTIONS (2)
  - DEATH [None]
  - LEUKAEMIA [None]
